FAERS Safety Report 5657260-9 (Version None)
Quarter: 2008Q1

REPORT INFORMATION
  Report Type: 
  Country: None (occurrence: None)
  Receive Date: 20080307
  Receipt Date: 20080307
  Transmission Date: 20080703
  Serious: Yes (Hospitalization)
  Sender: FDA-Public Use
  Company Number: None

PATIENT
  Sex: Male
  Weight: 107.3 kg

DRUGS (3)
  1. FLUOROURACIL [Suspect]
     Dosage: 6440 MG
     Dates: end: 20080102
  2. LEUCOVORIN CALCIUM [Suspect]
     Dosage: 920 MG
  3. ELOXATIN [Suspect]
     Dosage: 195 MG
     Dates: end: 20080102

REACTIONS (1)
  - GASTROENTERITIS VIRAL [None]
